FAERS Safety Report 8103462-1 (Version None)
Quarter: 2012Q1

REPORT INFORMATION
  Report Type: 
  Country: None (occurrence: None)
  Receive Date: 20120201
  Receipt Date: 20120130
  Transmission Date: 20120608
  Serious: Yes (Other)
  Sender: FDA-Public Use
  Company Number: US-BAYER-2011-115340

PATIENT
  Age: 60 Year
  Sex: Female

DRUGS (5)
  1. XANAX [Concomitant]
  2. BETASERON [Suspect]
     Indication: RELAPSING-REMITTING MULTIPLE SCLEROSIS
     Dosage: 8 MIU, UNK
     Route: 058
     Dates: start: 19931116
  3. ADDERALL 5 [Concomitant]
  4. CLONAZEPAM [Concomitant]
  5. MULTI-VITAMIN [Concomitant]

REACTIONS (16)
  - THROMBOSIS [None]
  - HAEMOGLOBIN DECREASED [None]
  - DEEP VEIN THROMBOSIS [None]
  - CENTRAL NERVOUS SYSTEM LESION [None]
  - HEPATIC ENZYME INCREASED [None]
  - PAIN IN EXTREMITY [None]
  - ALLERGY TO ARTHROPOD STING [None]
  - HYPERSENSITIVITY [None]
  - INJECTION SITE ERYTHEMA [None]
  - STRABISMUS [None]
  - PANCYTOPENIA [None]
  - LOWER EXTREMITY MASS [None]
  - OEDEMA PERIPHERAL [None]
  - SKIN MASS [None]
  - INJECTION SITE MASS [None]
  - MYELODYSPLASTIC SYNDROME [None]
